FAERS Safety Report 6437080-8 (Version None)
Quarter: 2009Q4

REPORT INFORMATION
  Report Type: 
  Country: None (occurrence: None)
  Receive Date: 20091110
  Receipt Date: 20071107
  Transmission Date: 20100525
  Serious: No
  Sender: FDA-Public Use
  Company Number: AEUSA200700263

PATIENT
  Age: 55 Year
  Sex: Female
  Weight: 63.5036 kg

DRUGS (3)
  1. GAMUNEX [Suspect]
     Indication: HYPOGAMMAGLOBULINAEMIA
     Dosage: 20 GM;QW;IV
     Route: 042
  2. CYTOMEL [Concomitant]
  3. LEVOXYL [Concomitant]

REACTIONS (6)
  - CHEST DISCOMFORT [None]
  - COUGH [None]
  - FEELING HOT [None]
  - HEADACHE [None]
  - INFUSION RELATED REACTION [None]
  - OROPHARYNGEAL DISCOMFORT [None]
